FAERS Safety Report 4849565-6 (Version None)
Quarter: 2005Q4

REPORT INFORMATION
  Report Type: 
  Country: None (occurrence: None)
  Receive Date: 20051207
  Receipt Date: 20051124
  Transmission Date: 20060501
  Serious: Yes (Hospitalization)
  Sender: FDA-Public Use
  Company Number: 2004198610FR

PATIENT
  Age: 78 Year
  Sex: Male

DRUGS (2)
  1. ESTRACYT (ESTRAMUSTINE PHOSPHATE SODIUM) [Suspect]
     Indication: PROSTATE CANCER
     Dosage: 3 DOSE FORMS (CYCLICAL), ORAL
     Route: 048
     Dates: start: 20030715, end: 20031013
  2. DOCETAXEL (DOCETAXEL) [Suspect]
     Indication: PROSTATE CANCER
     Dosage: 35 MG/M2 (CYCLICAL), INTRAVENOUS
     Route: 042
     Dates: start: 20030715, end: 20031013

REACTIONS (6)
  - CYANOSIS [None]
  - LUNG DISORDER [None]
  - NEUTROPHIL COUNT INCREASED [None]
  - OXYGEN SATURATION DECREASED [None]
  - TACHYPNOEA [None]
  - WHITE BLOOD CELL COUNT INCREASED [None]
